FAERS Safety Report 18392524 (Version 1)
Quarter: 2020Q4

REPORT INFORMATION
  Report Type: Spontaneous
  Country: US (occurrence: US)
  Receive Date: 20201016
  Receipt Date: 20201016
  Transmission Date: 20210114
  Serious: Yes (Hospitalization)
  Sender: FDA-Public Use
  Company Number: None

PATIENT
  Age: 47 Year
  Sex: Female
  Weight: 64 kg

DRUGS (1)
  1. ASPIRIN. [Suspect]
     Active Substance: ASPIRIN
     Dates: end: 20200607

REACTIONS (5)
  - Pyrexia [None]
  - Sepsis [None]
  - Implant site infection [None]
  - Staphylococcal infection [None]
  - Hypotension [None]

NARRATIVE: CASE EVENT DATE: 20200608
